FAERS Safety Report 5338358-1 (Version None)
Quarter: 2007Q2

REPORT INFORMATION
  Report Type: 
  Country: None (occurrence: None)
  Receive Date: 20070405
  Receipt Date: 20061212
  Transmission Date: 20071010
  Serious: No
  Sender: FDA-Public Use
  Company Number: US200611003159

PATIENT
  Age: 25 Year
  Sex: Male

DRUGS (2)
  1. CYMBALTA [Suspect]
     Indication: MAJOR DEPRESSION
     Dosage: 20 MG, 2/D
     Dates: start: 20060504, end: 20061130
  2. ENALAPRIL (ENALAPRIL) [Concomitant]

REACTIONS (2)
  - PROSTATE INFECTION [None]
  - URINARY HESITATION [None]
